FAERS Safety Report 11877743 (Version 1)
Quarter: 2015Q4

REPORT INFORMATION
  Report Type: Report from Study
  Country: ID (occurrence: ID)
  Receive Date: 20151230
  Receipt Date: 20151230
  Transmission Date: 20160305
  Serious: Yes (Hospitalization, Other)
  Sender: FDA-Public Use
  Company Number: ID-ROCHE-1685013

PATIENT
  Age: 61 Year
  Sex: Female

DRUGS (1)
  1. HERCEPTIN [Suspect]
     Active Substance: TRASTUZUMAB
     Indication: BREAST CANCER
     Dosage: STOP DATE:27/NOV/2013
     Route: 065
     Dates: start: 20130925

REACTIONS (10)
  - Dehydration [Unknown]
  - Weight decreased [Unknown]
  - General physical health deterioration [Unknown]
  - Hypercholesterolaemia [Unknown]
  - Pyrexia [Unknown]
  - Decreased appetite [Unknown]
  - Chills [Unknown]
  - Seizure [Unknown]
  - Weight fluctuation [Unknown]
  - Asthenia [Unknown]
